FAERS Safety Report 5124471-0 (Version None)
Quarter: 2006Q4

REPORT INFORMATION
  Report Type: 
  Country: None (occurrence: None)
  Receive Date: 20061006
  Receipt Date: 20060929
  Transmission Date: 20070319
  Serious: No
  Sender: FDA-Public Use
  Company Number: B0440838A

PATIENT
  Age: 57 Year
  Sex: Female
  Weight: 89.8122 kg

DRUGS (3)
  1. PAXIL [Suspect]
     Indication: DRUG USE FOR UNKNOWN INDICATION
     Dosage: 20 MG PER DAY ORAL
     Route: 048
     Dates: start: 20060726, end: 20060823
  2. ERYTHROMYCIN ET-SUCC. (ERYTHROMYCIN ET.SUCC.) [Suspect]
     Indication: SINUSITIS
     Dosage: 500 MG FOUR TIMES PER DAY ORAL
     Route: 048
     Dates: start: 20060904, end: 20060905
  3. TRAMADOL HYDROCHLORIDE [Concomitant]

REACTIONS (6)
  - DELIRIUM [None]
  - DISORIENTATION [None]
  - DRUG INTERACTION [None]
  - HALLUCINATION [None]
  - HYPERHIDROSIS [None]
  - PYREXIA [None]
